FAERS Safety Report 7415188-8 (Version None)
Quarter: 2011Q2

REPORT INFORMATION
  Report Type: 
  Country: None (occurrence: None)
  Receive Date: 20110414
  Receipt Date: 20110406
  Transmission Date: 20111010
  Serious: Yes (Hospitalization, Other)
  Sender: FDA-Public Use
  Company Number: PHHY2011FR23348

PATIENT
  Sex: Male
  Weight: 87 kg

DRUGS (2)
  1. EXTAVIA [Suspect]
     Indication: MULTIPLE SCLEROSIS
     Dosage: 250 UG, QOD
     Route: 058
     Dates: start: 20100809
  2. SOLU-MEDROL [Concomitant]
     Dosage: 1 DF, QD
     Dates: start: 20100809, end: 20100813

REACTIONS (9)
  - HOT FLUSH [None]
  - OEDEMA PERIPHERAL [None]
  - HYPERCOAGULATION [None]
  - MUSCLE SPASMS [None]
  - INJECTION SITE ERYTHEMA [None]
  - PHLEBITIS [None]
  - ABDOMINAL PAIN [None]
  - PARAESTHESIA [None]
  - ERYTHEMA [None]
